FAERS Safety Report 6184531-2 (Version None)
Quarter: 2009Q2

REPORT INFORMATION
  Report Type: 
  Country: None (occurrence: None)
  Receive Date: 20090508
  Receipt Date: 20090429
  Transmission Date: 20091009
  Serious: Yes (Life-Threatening, Hospitalization)
  Sender: FDA-Public Use
  Company Number: RO-AMGEN-QUU345086

PATIENT
  Sex: Male

DRUGS (5)
  1. NEULASTA [Suspect]
     Indication: CHEMOTHERAPY
     Route: 058
     Dates: start: 20090428, end: 20090428
  2. IBANDRONIC ACID [Concomitant]
     Route: 042
  3. CISPLATIN [Concomitant]
     Route: 042
  4. ETOPOSIDE [Concomitant]
     Route: 042
  5. BLEOMYCIN [Concomitant]
     Route: 042

REACTIONS (7)
  - ANAPHYLACTIC SHOCK [None]
  - COMA [None]
  - DEPRESSED LEVEL OF CONSCIOUSNESS [None]
  - HEADACHE [None]
  - HYPERHIDROSIS [None]
  - NAUSEA [None]
  - VOMITING [None]
